FAERS Safety Report 7042811-2 (Version None)
Quarter: 2010Q4

REPORT INFORMATION
  Report Type: 
  Country: None (occurrence: None)
  Receive Date: 20101013
  Receipt Date: 20090909
  Transmission Date: 20110411
  Serious: No
  Sender: FDA-Public Use
  Company Number: US-ASTRAZENECA-2009SE07538

PATIENT
  Sex: Female

DRUGS (4)
  1. SYMBICORT [Suspect]
     Indication: ASTHMA
     Dosage: 80/4.5 MCG  TWO PUFFS
     Route: 055
     Dates: start: 20090601
  2. SYMBICORT [Suspect]
     Dosage: 80/4.5 MCG  TWO PUFFS
     Route: 055
  3. SYMBICORT [Suspect]
     Dosage: 80/4.5 MCG  TWO PUFFS
     Route: 055
  4. XOPENEX [Concomitant]
     Indication: ASTHMA

REACTIONS (3)
  - ASTHMA [None]
  - DEVICE MALFUNCTION [None]
  - DRUG DOSE OMISSION [None]
